FAERS Safety Report 9580999 (Version 2)
Quarter: 2013Q4

REPORT INFORMATION
  Report Type: Report from Study
  Country: US (occurrence: US)
  Receive Date: 20131002
  Receipt Date: 20131002
  Transmission Date: 20140711
  Serious: Yes (Hospitalization, Other)
  Sender: FDA-Public Use
  Company Number: US-ABBVIE-11P-163-0874679-00

PATIENT
  Age: 36 Year
  Sex: Male
  Weight: 78.09 kg

DRUGS (3)
  1. HUMIRA 40 MG/0.8 ML PEN [Suspect]
     Indication: CROHN^S DISEASE
     Dosage: (160 MG, LOADING DOSE)
     Dates: start: 20111112, end: 20111112
  2. HUMIRA 40 MG/0.8 ML PEN [Suspect]
  3. PREDNISONE [Suspect]
     Indication: CROHN^S DISEASE

REACTIONS (8)
  - Thrombosis [Not Recovered/Not Resolved]
  - Pain in extremity [Not Recovered/Not Resolved]
  - Pain [Not Recovered/Not Resolved]
  - Dysstasia [Not Recovered/Not Resolved]
  - Pain [Not Recovered/Not Resolved]
  - Cholelithiasis [Recovered/Resolved]
  - Factor V Leiden mutation [Not Recovered/Not Resolved]
  - Arthropod sting [Not Recovered/Not Resolved]
